FAERS Safety Report 19418132 (Version 1)
Quarter: 2021Q2

REPORT INFORMATION
  Report Type: Spontaneous
  Country: US (occurrence: US)
  Receive Date: 20210614
  Receipt Date: 20210614
  Transmission Date: 20210717
  Serious: Yes (Life-Threatening, Other)
  Sender: FDA-Public Use
  Company Number: None

PATIENT
  Age: 70 Year
  Sex: Female
  Weight: 66.68 kg

DRUGS (1)
  1. UBRELVY [Suspect]
     Active Substance: UBROGEPANT
     Indication: MIGRAINE
     Dosage: 100 MG 1 X ORAL
     Route: 048
     Dates: start: 20210428, end: 20210428

REACTIONS (2)
  - Suicidal ideation [None]
  - Pain [None]

NARRATIVE: CASE EVENT DATE: 20210428
